FAERS Safety Report 7463413-X (Version None)
Quarter: 2011Q2

REPORT INFORMATION
  Report Type: 
  Country: None (occurrence: None)
  Receive Date: 20110506
  Receipt Date: 20110426
  Transmission Date: 20111010
  Serious: Yes (Other)
  Sender: FDA-Public Use
  Company Number: B0683713A

PATIENT
  Age: 17 Year
  Sex: Female
  Weight: 26 kg

DRUGS (8)
  1. CEFUROXIME [Concomitant]
     Dosage: 250MG TWICE PER DAY
  2. ETRAVIRINE [Concomitant]
     Indication: HIV INFECTION
     Dosage: 125MG TWICE PER DAY
  3. VENTOLIN [Concomitant]
     Route: 055
  4. SELZENTRY [Suspect]
     Indication: HIV INFECTION
     Dosage: 600MG TWICE PER DAY
     Route: 065
  5. ISENTRESS [Suspect]
     Indication: HIV INFECTION
     Dosage: 400MG TWICE PER DAY
     Route: 065
  6. MICOSTATIN [Concomitant]
  7. TRIMETHOPRIM + SULFAMETHOXAZOLE [Concomitant]
     Dosage: 500MG THREE TIMES PER WEEK
     Route: 048
  8. ANTIRETROVIRAL MEDICATIONS [Concomitant]

REACTIONS (3)
  - HALLUCINATION [None]
  - OFF LABEL USE [None]
  - GASTROINTESTINAL DISORDER [None]
